FAERS Safety Report 19591096 (Version 1)
Quarter: 2021Q3

REPORT INFORMATION
  Report Type: Report from Study
  Country: KR (occurrence: KR)
  Receive Date: 20210721
  Receipt Date: 20210721
  Transmission Date: 20211014
  Serious: Yes (Hospitalization)
  Sender: FDA-Public Use
  Company Number: KR-AMGEN-KORNI2021109192

PATIENT
  Age: 74 Year
  Sex: Female

DRUGS (6)
  1. BONVIVA [Concomitant]
     Active Substance: IBANDRONATE SODIUM
     Dosage: 150 UNK AND 3 UNK
     Dates: start: 20071217, end: 20130726
  2. CRESTOR [Concomitant]
     Active Substance: ROSUVASTATIN CALCIUM
     Dosage: 5 UNK, QD
     Route: 048
     Dates: start: 20210428, end: 202105
  3. OLOMAX [Concomitant]
     Dosage: 1 UNK, QD
     Route: 048
     Dates: start: 20210331, end: 202104
  4. OLMETEC [Concomitant]
     Active Substance: OLMESARTAN MEDOXOMIL
     Dosage: 20 UNK, QD
     Route: 048
     Dates: start: 20210428, end: 202105
  5. D MAC [Concomitant]
     Dosage: UNK UNK, QD
     Route: 048
     Dates: start: 20210331
  6. ROMOSOZUMAB [Suspect]
     Active Substance: ROMOSOZUMAB
     Indication: OSTEOPOROSIS
     Dosage: 210 UNK, QMO
     Route: 058
     Dates: start: 20210331

REACTIONS (1)
  - Coronary artery disease [Recovered/Resolved]

NARRATIVE: CASE EVENT DATE: 202104
